FAERS Safety Report 13706477 (Version 1)
Quarter: 2017Q2

REPORT INFORMATION
  Report Type: Spontaneous
  Country: US (occurrence: US)
  Receive Date: 20170630
  Receipt Date: 20170630
  Transmission Date: 20170830
  Serious: Yes (Other)
  Sender: FDA-Public Use
  Company Number: US-TEVA-783093USA

PATIENT
  Age: 29 Year
  Sex: Female

DRUGS (1)
  1. SUMATRIPTAN. [Suspect]
     Active Substance: SUMATRIPTAN
     Dosage: 300MG OVER A PERIOD OF 5 DAYS
     Route: 065

REACTIONS (2)
  - Balint^s syndrome [Unknown]
  - Reversible cerebral vasoconstriction syndrome [Recovered/Resolved]
